FAERS Safety Report 8642109 (Version 2)
Quarter: 2012Q4

REPORT INFORMATION
  Report Type: Report from Study
  Country: US (occurrence: US)
  Receive Date: 20120628
  Receipt Date: 20120906
  Transmission Date: 20130627
  Serious: Yes (Hospitalization)
  Sender: FDA-Public Use
  Company Number: US-PFIZER INC-2012146710

PATIENT
  Age: 60 Year
  Sex: Female
  Weight: 74.4 kg

DRUGS (15)
  1. IRINOTECAN HCL [Suspect]
     Indication: COLORECTAL CANCER METASTATIC
     Dosage: 180 mg/m2, on day 1 every 14 days
     Route: 042
     Dates: start: 20120326, end: 20120418
  2. FOLINIC ACID [Suspect]
     Indication: COLORECTAL CANCER METASTATIC
     Dosage: 400 mg/m2, on day 1 every 14 days
     Route: 042
     Dates: start: 20120326, end: 20120418
  3. FLUOROURACIL [Suspect]
     Indication: COLORECTAL CANCER METASTATIC
     Dosage: 400 mg/m2, on day 1 every 14 days
     Route: 040
     Dates: start: 20120326, end: 20120418
  4. FLUOROURACIL [Suspect]
     Dosage: 2400 mg/m2, on days 1 and 2 every 14 days
     Route: 042
     Dates: start: 20120326, end: 20120418
  5. BLINDED THERAPY [Suspect]
     Indication: COLORECTAL CANCER METASTATIC
     Dosage: UNK
     Route: 042
     Dates: start: 20120326, end: 20120418
  6. BENADRYL [Concomitant]
  7. BENZONATATE [Concomitant]
  8. COLACE [Concomitant]
  9. DEXAMETHASONE [Concomitant]
  10. ERGOCALCIFEROL [Concomitant]
  11. OXYCODONE [Concomitant]
  12. OXYCONTIN [Concomitant]
  13. COMPAZINE [Concomitant]
  14. CANNABIS SATIVA SUBSP. INDICA TOP [Concomitant]
  15. OXYGEN [Concomitant]
     Dosage: UNK
     Dates: start: 20120127, end: 20120721

REACTIONS (2)
  - Pneumothorax [Not Recovered/Not Resolved]
  - Dyspnoea [Not Recovered/Not Resolved]
